FAERS Safety Report 13983226 (Version 4)
Quarter: 2017Q4

REPORT INFORMATION
  Report Type: Report from Study
  Country: CA (occurrence: CA)
  Receive Date: 20170918
  Receipt Date: 20171003
  Transmission Date: 20180321
  Serious: Yes (Other)
  Sender: FDA-Public Use
  Company Number: CA-ROCHE-1874040

PATIENT
  Age: 77 Year
  Sex: Male

DRUGS (15)
  1. ESBRIET [Suspect]
     Active Substance: PIRFENIDONE
     Route: 048
     Dates: start: 20161229
  2. EZETIMIBE. [Concomitant]
     Active Substance: EZETIMIBE
  3. ACETYLSALICYLIC ACID [Concomitant]
     Active Substance: ASPIRIN
  4. ACETAMINOPHEN. [Concomitant]
     Active Substance: ACETAMINOPHEN
  5. ESBRIET [Suspect]
     Active Substance: PIRFENIDONE
     Route: 048
     Dates: start: 201701, end: 20170523
  6. PREGABALIN. [Concomitant]
     Active Substance: PREGABALIN
  7. NITRO (CANADA) [Concomitant]
     Active Substance: NITROGLYCERIN
  8. ESBRIET [Suspect]
     Active Substance: PIRFENIDONE
     Route: 048
     Dates: start: 20161222
  9. ESBRIET [Suspect]
     Active Substance: PIRFENIDONE
     Dosage: 0 - 534 MG - 534 MG DAILY, SUSPENDED
     Route: 048
     Dates: start: 201706
  10. ESBRIET [Suspect]
     Active Substance: PIRFENIDONE
     Indication: IDIOPATHIC PULMONARY FIBROSIS
     Route: 048
     Dates: start: 20161215
  11. DIAMICRON [Concomitant]
     Active Substance: GLICLAZIDE
  12. ATENOLOL. [Concomitant]
     Active Substance: ATENOLOL
  13. METFORMIN [Concomitant]
     Active Substance: METFORMIN HYDROCHLORIDE
     Route: 065
  14. ZYLOPRIM [Concomitant]
     Active Substance: ALLOPURINOL
  15. PANTOPRAZOLE [Concomitant]
     Active Substance: PANTOPRAZOLE

REACTIONS (23)
  - Nausea [Recovered/Resolved]
  - Gait inability [Not Recovered/Not Resolved]
  - Flatulence [Not Recovered/Not Resolved]
  - Hepatic fibrosis [Not Recovered/Not Resolved]
  - Abdominal distension [Recovering/Resolving]
  - Abdominal distension [Not Recovered/Not Resolved]
  - Abdominal distension [Not Recovered/Not Resolved]
  - Heart rate decreased [Unknown]
  - Dyspnoea [Recovering/Resolving]
  - Anxiety [Not Recovered/Not Resolved]
  - Dyspnoea exertional [Not Recovered/Not Resolved]
  - Insomnia [Not Recovered/Not Resolved]
  - Abdominal pain upper [Recovered/Resolved]
  - Weight increased [Unknown]
  - Eructation [Not Recovered/Not Resolved]
  - Abdominal discomfort [Recovering/Resolving]
  - Blood glucose increased [Unknown]
  - Ascites [Unknown]
  - Cough [Recovering/Resolving]
  - Fatigue [Not Recovered/Not Resolved]
  - Decreased appetite [Recovered/Resolved]
  - Pruritus [Not Recovered/Not Resolved]
  - Asthenia [Not Recovered/Not Resolved]

NARRATIVE: CASE EVENT DATE: 2017
